FAERS Safety Report 19180488 (Version 1)
Quarter: 2021Q2

REPORT INFORMATION
  Report Type: Spontaneous
  Country: US (occurrence: US)
  Receive Date: 20210426
  Receipt Date: 20210426
  Transmission Date: 20210717
  Serious: Yes (Other)
  Sender: FDA-Public Use
  Company Number: None

PATIENT
  Age: 79 Year
  Sex: Female
  Weight: 67.5 kg

DRUGS (11)
  1. VITAMIN C [Concomitant]
     Active Substance: ASCORBIC ACID
  2. FLAXSEED [Concomitant]
     Active Substance: FLAX SEED
  3. LOSARTAN. [Suspect]
     Active Substance: LOSARTAN
     Indication: HYPERTENSION
     Dosage: ?          QUANTITY:90 TABLET(S);?
     Route: 048
     Dates: start: 20210421, end: 20210426
  4. VITAMIN A [Concomitant]
     Active Substance: VITAMIN A
  5. WHEATGRASS [Concomitant]
  6. VITAMIN K [Concomitant]
     Active Substance: PHYTONADIONE
  7. COENZYME Q10 [Concomitant]
     Active Substance: DIETARY SUPPLEMENT\UBIDECARENONE
  8. CALCIUM [Concomitant]
     Active Substance: CALCIUM
  9. VITAMIN B [Concomitant]
     Active Substance: VITAMIN B
  10. VITAMIN E [Concomitant]
     Active Substance: .ALPHA.-TOCOPHEROL
  11. VITAMIN D3 [Concomitant]
     Active Substance: CHOLECALCIFEROL

REACTIONS (8)
  - Dysphonia [None]
  - Nasal congestion [None]
  - Rhinorrhoea [None]
  - Cough [None]
  - Nasopharyngitis [None]
  - Asthenia [None]
  - Sneezing [None]
  - Headache [None]

NARRATIVE: CASE EVENT DATE: 20210426
